FAERS Safety Report 7971041-2 (Version None)
Quarter: 2011Q4

REPORT INFORMATION
  Report Type: 
  Country: None (occurrence: None)
  Receive Date: 20111212
  Receipt Date: 20111212
  Transmission Date: 20120403
  Serious: Yes (Hospitalization)
  Sender: FDA-Public Use
  Company Number: None

PATIENT
  Sex: Female
  Weight: 104 kg

DRUGS (16)
  1. ACETAMINOPHEN [Concomitant]
     Route: 048
  2. ATIVAN [Concomitant]
     Route: 048
  3. DOCUSATE SODIUM [Concomitant]
     Route: 048
  4. ABRAXANE [Suspect]
     Indication: BREAST CANCER METASTATIC
     Dosage: 200 MG
     Route: 041
     Dates: start: 20111206, end: 20111206
  5. MULTI-VITAMIN [Concomitant]
     Route: 048
  6. DEXAMETHASONE [Concomitant]
     Route: 048
  7. ALLEGRA-D 24 HOUR 180-240MG [Concomitant]
     Route: 048
  8. EMLA [Concomitant]
     Route: 061
  9. SYNTHROID [Concomitant]
     Route: 048
  10. DILAUDID [Concomitant]
     Route: 042
  11. MS CONTIN [Concomitant]
     Route: 048
  12. ZOFRAN [Concomitant]
     Route: 048
  13. ZOMETA [Concomitant]
     Route: 042
  14. MORPHINE [Concomitant]
     Route: 042
  15. FERATAB FERROUS SULFATE [Concomitant]
     Route: 048
  16. IBUPROFEN [Concomitant]
     Route: 048

REACTIONS (1)
  - HOSPITALISATION [None]
